FAERS Safety Report 26135735 (Version 3)
Quarter: 2025Q4

REPORT INFORMATION
  Report Type: Spontaneous
  Country: GB (occurrence: GB)
  Receive Date: 20251209
  Receipt Date: 20251216
  Transmission Date: 20260118
  Serious: Yes (Other)
  Sender: PFIZER
  Company Number: GB-PFIZER INC-PV202500143407

PATIENT
  Age: 40 Year
  Sex: Male

DRUGS (2)
  1. LORLATINIB [Suspect]
     Active Substance: LORLATINIB
     Dosage: 100 MG
  2. APIXABAN [Suspect]
     Active Substance: APIXABAN
     Dosage: UNK

REACTIONS (2)
  - Oedema [Unknown]
  - Thrombosis [Unknown]
